FAERS Safety Report 16675053 (Version 1)
Quarter: 2019Q3

REPORT INFORMATION
  Report Type: Spontaneous
  Country: SA (occurrence: SA)
  Receive Date: 20190806
  Receipt Date: 20190806
  Transmission Date: 20191004
  Serious: Yes (Hospitalization)
  Sender: FDA-Public Use
  Company Number: SA-BIOMARINAP-SA-2019-124974

PATIENT
  Age: 3 Year
  Sex: Female

DRUGS (1)
  1. NAGLAZYME [Suspect]
     Active Substance: GALSULFASE
     Indication: MUCOPOLYSACCHARIDOSIS VI
     Dosage: UNK, QW
     Route: 042
     Dates: start: 201904

REACTIONS (2)
  - Bone marrow transplant [Unknown]
  - Knee operation [Unknown]

NARRATIVE: CASE EVENT DATE: 20190728
